FAERS Safety Report 9229971 (Version 1)
Quarter: 2013Q2

REPORT INFORMATION
  Report Type: Spontaneous
  Country: US (occurrence: None)
  Receive Date: 20130412
  Receipt Date: 20130412
  Transmission Date: 20140414
  Serious: No
  Sender: FDA-Public Use
  Company Number: None

PATIENT
  Age: 35 Year
  Sex: Female

DRUGS (1)
  1. AUBAGIO, 14 MG, GENZYME [Suspect]
     Route: 048
     Dates: start: 20130320, end: 20130329

REACTIONS (1)
  - Diarrhoea [None]
